FAERS Safety Report 11148899 (Version 2)
Quarter: 2016Q2

REPORT INFORMATION
  Report Type: Spontaneous
  Country: DK (occurrence: DK)
  Receive Date: 20150529
  Receipt Date: 20160627
  Transmission Date: 20160815
  Serious: Yes (Life-Threatening)
  Sender: FDA-Public Use
  Company Number: DK-PFIZER INC-2015180727

PATIENT
  Age: 35 Year
  Sex: Female
  Weight: 90 kg

DRUGS (1)
  1. CABASER [Suspect]
     Active Substance: CABERGOLINE
     Indication: HYPERPROLACTINAEMIA
     Dosage: 0.5 MG, WEEKLY
     Route: 048
     Dates: start: 2008, end: 20150505

REACTIONS (5)
  - Arterial occlusive disease [Not Recovered/Not Resolved]
  - Right ventricular failure [Not Recovered/Not Resolved]
  - Pulmonary hypertension [Not Recovered/Not Resolved]
  - Pulmonary artery stenosis [Not Recovered/Not Resolved]
  - Arterial fibrosis [Not Recovered/Not Resolved]

NARRATIVE: CASE EVENT DATE: 2014
